FAERS Safety Report 4926833-0 (Version None)
Quarter: 2006Q1

REPORT INFORMATION
  Report Type: 
  Country: None (occurrence: None)
  Receive Date: 20060228
  Receipt Date: 20050628
  Transmission Date: 20060701
  Serious: No
  Sender: FDA-Public Use
  Company Number: US-GLAXOSMITHKLINE-A0564495A

PATIENT
  Age: 51 Year
  Sex: Female

DRUGS (7)
  1. LAMICTAL [Suspect]
     Indication: BIPOLAR DISORDER
     Dosage: 100MG PER DAY
     Route: 048
  2. ZOLOFT [Concomitant]
     Dosage: 200MG PER DAY
     Route: 048
     Dates: start: 20050501
  3. TOPAMAX [Concomitant]
     Indication: MIGRAINE
     Dosage: 100MG AT NIGHT
     Route: 048
  4. TRAZODONE [Concomitant]
     Route: 048
  5. LORAZEPAM [Concomitant]
     Dosage: 1MG PER DAY
  6. SYNTHROID [Concomitant]
     Indication: HYPOTHYROIDISM
     Dosage: .025MG PER DAY
     Route: 048
  7. REMERON [Concomitant]
     Indication: INSOMNIA
     Dosage: 15MG AT NIGHT
     Route: 048

REACTIONS (1)
  - PHLEBITIS SUPERFICIAL [None]
